FAERS Safety Report 4355300-0 (Version None)
Quarter: 2004Q2

REPORT INFORMATION
  Report Type: 
  Country: None (occurrence: None)
  Receive Date: 20040504
  Receipt Date: 20030731
  Transmission Date: 20050107
  Serious: No
  Sender: FDA-Public Use
  Company Number: 200303112

PATIENT
  Age: 18 Year
  Sex: Female

DRUGS (3)
  1. TYLENOL ANALGESIC UNKNOWN (ACETAMINOPHEN) [Suspect]
     Indication: SUICIDE ATTEMPT
     Dosage: PO
     Route: 048
  2. ASPIRIN [Suspect]
     Indication: SUICIDE ATTEMPT
     Dosage: PO
     Route: 048
  3. TETRACYCLINE [Suspect]

REACTIONS (3)
  - DIZZINESS [None]
  - INTENTIONAL MISUSE [None]
  - NAUSEA [None]
